FAERS Safety Report 7043737-0 (Version None)
Quarter: 2010Q4

REPORT INFORMATION
  Report Type: 
  Country: None (occurrence: None)
  Receive Date: 20101013
  Receipt Date: 20101006
  Transmission Date: 20110411
  Serious: Yes (Disabling, Other)
  Sender: FDA-Public Use
  Company Number: US-US-EMD SERONO, INC.-7020772

PATIENT
  Sex: Female
  Weight: 94 kg

DRUGS (5)
  1. REBIF [Suspect]
     Indication: MULTIPLE SCLEROSIS
     Route: 058
     Dates: start: 20041006
  2. HUMALOG [Concomitant]
     Indication: DIABETES MELLITUS
  3. HUMULIN N [Concomitant]
     Indication: DIABETES MELLITUS
  4. BACLOFEN [Concomitant]
     Indication: MULTIPLE SCLEROSIS
  5. GABAPENTIN [Concomitant]
     Indication: MULTIPLE SCLEROSIS

REACTIONS (2)
  - PROTEINURIA [None]
  - RETINAL DETACHMENT [None]
